FAERS Safety Report 13615453 (Version 1)
Quarter: 2017Q2

REPORT INFORMATION
  Report Type: Spontaneous
  Country: US (occurrence: US)
  Receive Date: 20170606
  Receipt Date: 20170606
  Transmission Date: 20170830
  Serious: Yes (Other)
  Sender: FDA-Public Use
  Company Number: None

PATIENT
  Sex: Female

DRUGS (2)
  1. UNSPECIFIED ASBESTOS CONTAINING PRODUCTS [Suspect]
     Active Substance: MINERALS
     Dates: start: 1963, end: 2017
  2. JOHNSONS BABY POWDER [Suspect]
     Active Substance: TALC
     Route: 061

REACTIONS (3)
  - Mesothelioma malignant [None]
  - Incorrect drug administration duration [None]
  - Exposure to chemical pollution [None]

NARRATIVE: CASE EVENT DATE: 201703
